FAERS Safety Report 19398179 (Version 3)
Quarter: 2023Q4

REPORT INFORMATION
  Report Type: Spontaneous
  Country: US (occurrence: US)
  Receive Date: 20210610
  Receipt Date: 20231026
  Transmission Date: 20240110
  Serious: Yes (Other)
  Sender: FDA-Public Use
  Company Number: US-GILEAD-2021-0534890

PATIENT
  Age: 54 Year
  Sex: Male
  Weight: 63.492 kg

DRUGS (52)
  1. VIREAD [Suspect]
     Active Substance: TENOFOVIR DISOPROXIL FUMARATE
     Indication: HIV infection
     Dosage: UNK
     Route: 048
     Dates: start: 2010
  2. VIREAD [Suspect]
     Active Substance: TENOFOVIR DISOPROXIL FUMARATE
     Dosage: UNK
     Route: 048
     Dates: start: 2001, end: 2004
  3. TRUVADA [Suspect]
     Active Substance: EMTRICITABINE\TENOFOVIR DISOPROXIL FUMARATE
     Indication: HIV infection
     Dosage: UNK
     Route: 048
     Dates: start: 2010
  4. TRUVADA [Suspect]
     Active Substance: EMTRICITABINE\TENOFOVIR DISOPROXIL FUMARATE
     Dosage: UNK
     Route: 048
     Dates: start: 2004, end: 200911
  5. ATRIPLA [Suspect]
     Active Substance: EFAVIRENZ\EMTRICITABINE\TENOFOVIR DISOPROXIL FUMARATE
     Indication: HIV infection
     Dosage: UNK
     Route: 048
     Dates: start: 2010
  6. ATRIPLA [Suspect]
     Active Substance: EFAVIRENZ\EMTRICITABINE\TENOFOVIR DISOPROXIL FUMARATE
     Dosage: UNK
     Route: 048
     Dates: start: 200911, end: 201803
  7. BIKTARVY [Concomitant]
     Active Substance: BICTEGRAVIR SODIUM\EMTRICITABINE\TENOFOVIR ALAFENAMIDE FUMARATE
  8. GENVOYA [Concomitant]
     Active Substance: COBICISTAT\ELVITEGRAVIR\EMTRICITABINE\TENOFOVIR ALAFENAMIDE FUMARATE
  9. LEXIVA [Concomitant]
     Active Substance: FOSAMPRENAVIR CALCIUM
  10. SUSTIVA [Concomitant]
     Active Substance: EFAVIRENZ
  11. ACIDOPHILUS [Concomitant]
     Active Substance: LACTOBACILLUS ACIDOPHILUS
  12. ALBUTEROL SULFATE [Concomitant]
     Active Substance: ALBUTEROL SULFATE
  13. AMOXICILLIN [Concomitant]
     Active Substance: AMOXICILLIN
  14. AVELOX [Concomitant]
     Active Substance: MOXIFLOXACIN HYDROCHLORIDE
  15. AZITHROMYCIN [Concomitant]
     Active Substance: AZITHROMYCIN
  16. BENZONATATE [Concomitant]
     Active Substance: BENZONATATE
  17. CRESTOR [Concomitant]
     Active Substance: ROSUVASTATIN CALCIUM
  18. CYCLOBENZAPRINE [Concomitant]
     Active Substance: CYCLOBENZAPRINE
  19. DOXYCYCLINE [Concomitant]
     Active Substance: DOXYCYCLINE
  20. ESCITALOPRAM [Concomitant]
     Active Substance: ESCITALOPRAM OXALATE
  21. ESOMEPRAZOLE MAGNESIUM [Concomitant]
     Active Substance: ESOMEPRAZOLE\ESOMEPRAZOLE MAGNESIUM\ESOMEPRAZOLE MAGNESIUM DIHYDRATE
  22. ENSURE [Concomitant]
     Active Substance: AMINO ACIDS\DEXTROSE\ELECTROLYTES NOS\SOYBEAN OIL\VITAMINS
  23. FERROUS GLUCONATE [Concomitant]
     Active Substance: FERROUS GLUCONATE
  24. FERROUS SULFATE [Concomitant]
     Active Substance: FERROUS SULFATE
  25. FEXOFENADINE [Concomitant]
     Active Substance: FEXOFENADINE HYDROCHLORIDE
  26. FOLIC ACID [Concomitant]
     Active Substance: FOLIC ACID
  27. HYDROCORTISONE [Concomitant]
     Active Substance: HYDROCORTISONE
  28. IPRATROPIUM BROMIDE AND ALBUTEROL SULFATE [Concomitant]
     Active Substance: ALBUTEROL SULFATE\IPRATROPIUM BROMIDE
  29. IRON [Concomitant]
     Active Substance: IRON
  30. LEVOFLOXACIN [Concomitant]
     Active Substance: LEVOFLOXACIN
  31. LOSARTAN [Concomitant]
     Active Substance: LOSARTAN
  32. METHYLPREDNISOLONE [Concomitant]
     Active Substance: METHYLPREDNISOLONE
  33. NASONEX [Concomitant]
     Active Substance: MOMETASONE FUROATE
  34. NEXIUM I.V. [Concomitant]
     Active Substance: ESOMEPRAZOLE SODIUM
  35. ONE DAILY WITH CALCIUM, IRON + ZINC [Concomitant]
  36. OSELTAMIVIR [Concomitant]
     Active Substance: OSELTAMIVIR
  37. PREDNISONE [Concomitant]
     Active Substance: PREDNISONE
  38. PROAIR HFA [Concomitant]
     Active Substance: ALBUTEROL SULFATE
  39. PROVENTIL HFA [Concomitant]
     Active Substance: ALBUTEROL SULFATE
  40. ROSUVASTATIN [Concomitant]
     Active Substance: ROSUVASTATIN
  41. SERTRALINE [Concomitant]
     Active Substance: SERTRALINE HYDROCHLORIDE
  42. SPIRIVA [Concomitant]
     Active Substance: TIOTROPIUM BROMIDE MONOHYDRATE
  43. SULFAMETHOXAZOLE [Concomitant]
     Active Substance: SULFAMETHOXAZOLE
  44. SYMBICORT [Concomitant]
     Active Substance: BUDESONIDE\FORMOTEROL FUMARATE DIHYDRATE
  45. ACLIDINIUM BROMIDE [Concomitant]
     Active Substance: ACLIDINIUM BROMIDE
  46. VENTOLIN HFA [Concomitant]
     Active Substance: ALBUTEROL SULFATE
  47. ASCORBIC ACID [Concomitant]
     Active Substance: ASCORBIC ACID
  48. VITAMIN D2 [Concomitant]
     Active Substance: ERGOCALCIFEROL
  49. VITAMIN D3 [Concomitant]
     Active Substance: CHOLECALCIFEROL
  50. HYDROCODONE [Concomitant]
     Active Substance: HYDROCODONE
  51. NORVIR [Concomitant]
     Active Substance: RITONAVIR
  52. ONDANSETRON [Concomitant]
     Active Substance: ONDANSETRON

REACTIONS (9)
  - Osteoporosis [Not Recovered/Not Resolved]
  - Hip fracture [Recovered/Resolved]
  - Bone demineralisation [Unknown]
  - Pain [Not Recovered/Not Resolved]
  - Emotional distress [Not Recovered/Not Resolved]
  - Anxiety [Not Recovered/Not Resolved]
  - Anhedonia [Not Recovered/Not Resolved]
  - Mobility decreased [Unknown]
  - Vitamin D deficiency [Not Recovered/Not Resolved]

NARRATIVE: CASE EVENT DATE: 20171201
